FAERS Safety Report 21308303 (Version 1)
Quarter: 2022Q3

REPORT INFORMATION
  Report Type: Spontaneous
  Country: JP (occurrence: JP)
  Receive Date: 20220908
  Receipt Date: 20220908
  Transmission Date: 20221026
  Serious: Yes (Hospitalization)
  Sender: FDA-Public Use
  Company Number: JP-JNJFOC-20220441428

PATIENT
  Age: 78 Year
  Sex: Male
  Weight: 66.8 kg

DRUGS (15)
  1. UPTRAVI [Suspect]
     Active Substance: SELEXIPAG
     Indication: Pulmonary arterial hypertension
     Route: 048
     Dates: start: 20181228, end: 20190131
  2. UPTRAVI [Suspect]
     Active Substance: SELEXIPAG
     Route: 048
     Dates: start: 20190201, end: 20190314
  3. UPTRAVI [Suspect]
     Active Substance: SELEXIPAG
     Route: 048
     Dates: start: 20190315, end: 20190425
  4. UPTRAVI [Suspect]
     Active Substance: SELEXIPAG
     Route: 048
     Dates: start: 20190426, end: 20190613
  5. UPTRAVI [Suspect]
     Active Substance: SELEXIPAG
     Route: 048
     Dates: start: 20190614
  6. ADCIRCA [Concomitant]
     Active Substance: TADALAFIL
     Indication: Pulmonary arterial hypertension
     Route: 048
  7. PIMOBENDAN [Concomitant]
     Active Substance: PIMOBENDAN
     Dates: end: 20190704
  8. SILODOSIN [Concomitant]
     Active Substance: SILODOSIN
  9. FEBUXOSTAT [Concomitant]
     Active Substance: FEBUXOSTAT
  10. XARELTO [Concomitant]
     Active Substance: RIVAROXABAN
     Dates: end: 20190702
  11. XARELTO [Concomitant]
     Active Substance: RIVAROXABAN
     Dates: start: 20190704
  12. FUROSEMIDE [Concomitant]
     Active Substance: FUROSEMIDE
  13. ATENOLOL [Concomitant]
     Active Substance: ATENOLOL
  14. LUNESTA [Concomitant]
     Active Substance: ESZOPICLONE
  15. AZOSEMIDE [Concomitant]
     Active Substance: AZOSEMIDE
     Dates: start: 20190803

REACTIONS (1)
  - Atrial septal defect [Recovering/Resolving]

NARRATIVE: CASE EVENT DATE: 20190702
